FAERS Safety Report 20809703 (Version 3)
Quarter: 2022Q3

REPORT INFORMATION
  Report Type: Report from Study
  Country: US (occurrence: US)
  Receive Date: 20220510
  Receipt Date: 20220926
  Transmission Date: 20221027
  Serious: Yes (Hospitalization, Other)
  Sender: FDA-Public Use
  Company Number: US-TAKEDA-2022TUS029680

PATIENT
  Sex: Male
  Weight: 20 kg

DRUGS (22)
  1. HUMAN IMMUNOGLOBULIN G [Suspect]
     Active Substance: HUMAN IMMUNOGLOBULIN G
     Indication: Hypogammaglobulinaemia
     Dosage: 10 GRAM, Q2WEEKS
     Route: 058
  2. HUMAN IMMUNOGLOBULIN G [Suspect]
     Active Substance: HUMAN IMMUNOGLOBULIN G
     Dosage: 10 GRAM, Q2WEEKS
     Route: 058
     Dates: start: 20220415
  3. ACETAMINOPHEN [Concomitant]
     Active Substance: ACETAMINOPHEN
  4. DIPHENHYDRAMINE [Concomitant]
     Active Substance: DIPHENHYDRAMINE
  5. EPINEPHRINE [Concomitant]
     Active Substance: EPINEPHRINE
  6. Lmx [Concomitant]
  7. FUROSEMIDE [Concomitant]
     Active Substance: FUROSEMIDE
  8. TADALAFIL [Concomitant]
     Active Substance: TADALAFIL
  9. ASPIRIN [Concomitant]
     Active Substance: ASPIRIN
  10. PULMICORT TURBUHALER [Concomitant]
     Active Substance: BUDESONIDE
  11. NEXIUM [Concomitant]
     Active Substance: ESOMEPRAZOLE MAGNESIUM
  12. SULFAMETHOXAZOLE AND TRIMETHOPRIM [Concomitant]
     Active Substance: SULFAMETHOXAZOLE\TRIMETHOPRIM
  13. GAMMAGARD [Concomitant]
     Active Substance: HUMAN IMMUNOGLOBULIN G
  14. SPIRONOLACTONE [Concomitant]
     Active Substance: SPIRONOLACTONE
  15. MELATONIN [Concomitant]
     Active Substance: MELATONIN
  16. DIAZEPAM [Concomitant]
     Active Substance: DIAZEPAM
  17. LAMOTRIGINE [Concomitant]
     Active Substance: LAMOTRIGINE
  18. POLYETHYLENE GLYCOL [Concomitant]
     Active Substance: POLYETHYLENE GLYCOL
  19. ONDANSETRON [Concomitant]
     Active Substance: ONDANSETRON
  20. CLONAZEPAM [Concomitant]
     Active Substance: CLONAZEPAM
  21. OXCARBAZEPINE [Concomitant]
     Active Substance: OXCARBAZEPINE
  22. ONDANSETRON HCL [Concomitant]
     Active Substance: ONDANSETRON HYDROCHLORIDE

REACTIONS (4)
  - Heart transplant [Unknown]
  - Cytomegalovirus infection [Unknown]
  - Illness [Unknown]
  - Gait disturbance [Unknown]
